FAERS Safety Report 16347528 (Version 2)
Quarter: 2020Q1

REPORT INFORMATION
  Report Type: Spontaneous
  Country: NL (occurrence: NL)
  Receive Date: 20190523
  Receipt Date: 20200123
  Transmission Date: 20200409
  Serious: Yes (Life-Threatening, Hospitalization, Other)
  Sender: FDA-Public Use
  Company Number: NL-AUROBINDO-AUR-APL-2019-028758

PATIENT

DRUGS (4)
  1. OXALIPLATIN. [Suspect]
     Active Substance: OXALIPLATIN
     Indication: COLORECTAL CANCER
     Dosage: UNK, DATE OF LAST DOSE OF OXALIPLATIN: 4/APR/2019.
     Route: 065
     Dates: start: 20190404
  2. BEVACIZUMAB. [Suspect]
     Active Substance: BEVACIZUMAB
     Indication: COLORECTAL CANCER
     Dosage: UNK, DATE OF LAST DOSE OF BEVACIZUMAB: 04/APR/2019.
     Route: 065
     Dates: start: 20190404
  3. FLUOROURACIL. [Suspect]
     Active Substance: FLUOROURACIL
     Indication: COLORECTAL CANCER
     Dosage: UNK, DATE OF LAST DOSE OF FLUOROURACIL: 4/APR/2019.
     Route: 065
     Dates: start: 20190404
  4. LEUCOVORIN. [Suspect]
     Active Substance: LEUCOVORIN
     Indication: COLORECTAL CANCER
     Dosage: UNK, DATE OF LAST DOSE OF FOLINIC ACID: 5/APR//2019
     Route: 065
     Dates: start: 20190404

REACTIONS (2)
  - Pyrexia [Recovered/Resolved]
  - Large intestine perforation [Recovered/Resolved]

NARRATIVE: CASE EVENT DATE: 20190405
